FAERS Safety Report 9240312 (Version 1)
Quarter: 2013Q1

REPORT INFORMATION
  Report Type: Spontaneous
  Country: US (occurrence: None)
  Receive Date: 20121102
  Receipt Date: 20121102
  Transmission Date: 20140127
  Serious: No
  Sender: FDA-Public Use
  Company Number: 133402

PATIENT
  Age: 65 Year
  Sex: Male

DRUGS (1)
  1. LEUCOVORIN CALCIUM [Suspect]
     Route: 042

REACTIONS (1)
  - Mental status changes [None]
